FAERS Safety Report 10229450 (Version 2)
Quarter: 2014Q3

REPORT INFORMATION
  Report Type: Spontaneous
  Country: DE (occurrence: DE)
  Receive Date: 20140611
  Receipt Date: 20140717
  Transmission Date: 20150326
  Serious: Yes (Disabling, Other)
  Sender: FDA-Public Use
  Company Number: DE-RANBAXY-2014RR-81904

PATIENT
  Age: 72 Year
  Sex: Male
  Weight: 85 kg

DRUGS (4)
  1. TONOTEC 10/5 [Concomitant]
     Indication: HYPERTENSION
     Dosage: 1 X 1, FOR ABOUT 3-4 MONTHS
     Route: 048
  2. ACTRAPID [Concomitant]
     Active Substance: INSULIN HUMAN
     Indication: TYPE 2 DIABETES MELLITUS
     Dosage: FOR YEARS, AS PER PLAN
     Route: 058
  3. JANUVIA [Concomitant]
     Active Substance: SITAGLIPTIN PHOSPHATE
     Indication: PRODUCT USED FOR UNKNOWN INDICATION
     Dosage: 1 X 1, FOR ABOUT ONE YEAR
     Route: 048
  4. CIPRO [Suspect]
     Active Substance: CIPROFLOXACIN HYDROCHLORIDE
     Indication: GENITAL INFECTION
     Dosage: 2 X 1
     Route: 048
     Dates: start: 20140424, end: 20140504

REACTIONS (3)
  - Fatigue [Recovered/Resolved]
  - Somnolence [Recovered/Resolved]
  - Physical disability [Recovered/Resolved]

NARRATIVE: CASE EVENT DATE: 20140424
